FAERS Safety Report 5059437-2 (Version None)
Quarter: 2006Q3

REPORT INFORMATION
  Report Type: 
  Country: None (occurrence: None)
  Receive Date: 20060724
  Receipt Date: 20060713
  Transmission Date: 20061208
  Serious: Yes (Hospitalization)
  Sender: FDA-Public Use
  Company Number: US-KINGPHARMUSA00001-K200600914

PATIENT
  Age: 67 Year
  Sex: Male

DRUGS (8)
  1. ALTACE [Suspect]
     Indication: HYPERTENSION
     Dosage: 2.5 MG, QD
     Route: 048
  2. SOTALOL HCL [Suspect]
     Indication: HYPERTENSION
     Dosage: 80 MG, QD
     Route: 048
  3. LOPERAMIDE [Concomitant]
     Route: 048
  4. OMEPRAZOLE [Concomitant]
     Dosage: 20 MG, UNK
     Route: 048
  5. PREVISCAN [Concomitant]
     Dosage: 25 MG, UNK
     Route: 048
     Dates: end: 20060602
  6. PREVISCAN [Concomitant]
     Dosage: 25 MG, UNK
     Route: 048
     Dates: start: 20060605
  7. SMECTA ^DAE WOONG^ [Concomitant]
     Route: 048
  8. INSULIN [Concomitant]
     Indication: DIABETES MELLITUS
     Dosage: 26 IU AM, 22 IU PM
     Route: 058

REACTIONS (18)
  - ATRIOVENTRICULAR BLOCK FIRST DEGREE [None]
  - BLOOD CREATININE INCREASED [None]
  - BLOOD UREA INCREASED [None]
  - BRADYCARDIA [None]
  - CARDIOACTIVE DRUG LEVEL INCREASED [None]
  - DEHYDRATION [None]
  - DIARRHOEA [None]
  - DRUG INTERACTION [None]
  - HYPERHIDROSIS [None]
  - HYPOGLYCAEMIA [None]
  - HYPOTENSION [None]
  - HYPOTONIA [None]
  - INTERNATIONAL NORMALISED RATIO INCREASED [None]
  - LOSS OF CONSCIOUSNESS [None]
  - PALLOR [None]
  - RENAL IMPAIRMENT [None]
  - VENTRICULAR EXTRASYSTOLES [None]
  - VITAMIN K DECREASED [None]
